FAERS Safety Report 13206852 (Version 1)
Quarter: 2017Q1

REPORT INFORMATION
  Report Type: Spontaneous
  Country: US (occurrence: US)
  Receive Date: 20170209
  Receipt Date: 20170209
  Transmission Date: 20170428
  Serious: No
  Sender: FDA-Public Use
  Company Number: US-SA-2016SA225955

PATIENT
  Age: 68 Year
  Sex: Female

DRUGS (3)
  1. ALIROCUMAB PREFILLED SYRINGE [Concomitant]
     Indication: LOW DENSITY LIPOPROTEIN INCREASED
     Dates: start: 201609
  2. PRALUENT [Suspect]
     Active Substance: ALIROCUMAB
     Indication: LOW DENSITY LIPOPROTEIN INCREASED
     Route: 065
     Dates: start: 201609
  3. SYNTHROID [Concomitant]
     Active Substance: LEVOTHYROXINE SODIUM

REACTIONS (1)
  - Constipation [Unknown]
